FAERS Safety Report 8834730 (Version 3)
Quarter: 2013Q1

REPORT INFORMATION
  Report Type: Spontaneous
  Country: CH (occurrence: None)
  Receive Date: 20121009
  Receipt Date: 20130204
  Transmission Date: 20140127
  Serious: Yes (Hospitalization)
  Sender: FDA-Public Use
  Company Number: 2012DEPCH00453

PATIENT
  Age: 36 Year
  Sex: Male

DRUGS (2)
  1. DEPOCYTE [Suspect]
     Indication: B-CELL LYMPHOMA
  2. DEPOCYTE [Suspect]
     Indication: TESTICULAR DISORDER

REACTIONS (2)
  - Pleural effusion [None]
  - Lung consolidation [None]
